FAERS Safety Report 17574968 (Version 3)
Quarter: 2020Q4

REPORT INFORMATION
  Report Type: Spontaneous
  Country: US (occurrence: US)
  Receive Date: 20200324
  Receipt Date: 20201215
  Transmission Date: 20210113
  Serious: Yes (Hospitalization, Other)
  Sender: FDA-Public Use
  Company Number: US-TEVA-2020-US-1208643

PATIENT
  Sex: Male

DRUGS (1)
  1. PROVIGIL [Suspect]
     Active Substance: MODAFINIL
     Dosage: 400 MILLIGRAM DAILY;

REACTIONS (4)
  - Multiple sclerosis [Unknown]
  - Hospitalisation [Unknown]
  - Prostate cancer [Unknown]
  - Sudden onset of sleep [Unknown]
